FAERS Safety Report 25404434 (Version 1)
Quarter: 2025Q2

REPORT INFORMATION
  Report Type: Spontaneous
  Country: BR (occurrence: BR)
  Receive Date: 20250606
  Receipt Date: 20250606
  Transmission Date: 20250716
  Serious: Yes (Hospitalization, Other)
  Sender: SANDOZ
  Company Number: BR-002147023-NVSC2025BR087991

PATIENT

DRUGS (3)
  1. IMATINIB [Suspect]
     Active Substance: IMATINIB
     Indication: Product used for unknown indication
     Route: 065
  2. LEVOFLOXACIN [Suspect]
     Active Substance: LEVOFLOXACIN
     Indication: Product used for unknown indication
     Route: 065
  3. VALSARTAN [Suspect]
     Active Substance: VALSARTAN
     Indication: Product used for unknown indication
     Route: 065

REACTIONS (31)
  - Respiratory tract infection [Unknown]
  - Cough [Unknown]
  - Dyspnoea [Unknown]
  - Hypertrophic cardiomyopathy [Unknown]
  - Pneumonitis [Unknown]
  - Pulmonary toxicity [Unknown]
  - Pulmonary hypertension [Unknown]
  - Mitral valve incompetence [Unknown]
  - Aortic dilatation [Unknown]
  - Aortic valve sclerosis [Unknown]
  - Left ventricular end-diastolic pressure increased [Unknown]
  - Arteriosclerosis [Unknown]
  - Left atrial enlargement [Unknown]
  - Pericardial effusion [Unknown]
  - Pulmonary oedema [Unknown]
  - Cardiac septal hypertrophy [Unknown]
  - Osteopenia [Unknown]
  - Varicose vein [Unknown]
  - Auscultation [Unknown]
  - Fatigue [Unknown]
  - Weight increased [Unknown]
  - Decreased appetite [Unknown]
  - Diarrhoea infectious [Unknown]
  - Oedema peripheral [Unknown]
  - Arteriosclerosis [Unknown]
  - Ultrasound chest [Unknown]
  - Atelectasis [Unknown]
  - Cardiovascular disorder [Unknown]
  - Hypertrophy [Unknown]
  - Blood pressure decreased [Unknown]
  - Nausea [Unknown]
